FAERS Safety Report 19867464 (Version 3)
Quarter: 2021Q4

REPORT INFORMATION
  Report Type: Report from Study
  Country: US (occurrence: US)
  Receive Date: 20210922
  Receipt Date: 20211008
  Transmission Date: 20220304
  Serious: Yes (Hospitalization)
  Sender: FDA-Public Use
  Company Number: US-CELGENE-USA-20210904003

PATIENT
  Age: 62 Year
  Sex: Female

DRUGS (1)
  1. BREYANZI [Suspect]
     Active Substance: LISOCABTAGENE MARALEUCEL
     Indication: B-cell lymphoma
     Route: 041
     Dates: start: 20210901, end: 20210901

REACTIONS (4)
  - Visual agnosia [Recovering/Resolving]
  - Gait inability [Unknown]
  - Aphasia [Recovering/Resolving]
  - Dysstasia [Unknown]

NARRATIVE: CASE EVENT DATE: 20210907
